FAERS Safety Report 7355431-7 (Version None)
Quarter: 2011Q1

REPORT INFORMATION
  Report Type: 
  Country: None (occurrence: None)
  Receive Date: 20110316
  Receipt Date: 20110302
  Transmission Date: 20110831
  Serious: Yes (Hospitalization)
  Sender: FDA-Public Use
  Company Number: JP-ELI_LILLY_AND_COMPANY-JP201012005986

PATIENT
  Age: 53 Year
  Sex: Male

DRUGS (4)
  1. ALIMTA [Suspect]
     Indication: LUNG ADENOCARCINOMA
     Dosage: 500 MG/M2, UNK
     Route: 042
     Dates: start: 20101001
  2. CYANOCOBALAMIN [Concomitant]
     Route: 030
  3. CISPLATIN [Concomitant]
     Indication: LUNG ADENOCARCINOMA
     Dosage: UNK, UNK
     Route: 042
     Dates: start: 20101001
  4. FOLIC ACID [Concomitant]
     Route: 048

REACTIONS (3)
  - LIVER FUNCTION TEST ABNORMAL [None]
  - BLOOD UREA INCREASED [None]
  - BLOOD CREATININE INCREASED [None]
